FAERS Safety Report 5452878-0 (Version None)
Quarter: 2007Q3

REPORT INFORMATION
  Report Type: 
  Country: None (occurrence: None)
  Receive Date: 20070914
  Receipt Date: 20070905
  Transmission Date: 20080115
  Serious: Yes (Hospitalization)
  Sender: FDA-Public Use
  Company Number: A0676120A

PATIENT
  Age: 69 Year
  Sex: Female

DRUGS (4)
  1. LAPATINIB [Suspect]
     Dosage: 1250MG PER DAY
     Route: 048
  2. TOPOTECAN [Suspect]
     Dosage: 3.2MGM2 CYCLIC
     Route: 042
  3. DRIDASE [Concomitant]
     Indication: INCONTINENCE
     Dosage: .5MG TWICE PER DAY
     Route: 048
     Dates: start: 20070806, end: 20070808
  4. TRAUMANASE [Concomitant]
     Indication: WOUND
     Dosage: 20MG AS DIRECTED
     Route: 048
     Dates: start: 20070806, end: 20070808

REACTIONS (2)
  - AMNESIA [None]
  - SYNCOPE [None]
